FAERS Safety Report 6535662-6 (Version None)
Quarter: 2010Q1

REPORT INFORMATION
  Report Type: 
  Country: None (occurrence: None)
  Receive Date: 20100113
  Receipt Date: 20100104
  Transmission Date: 20100710
  Serious: Yes (Other)
  Sender: FDA-Public Use
  Company Number: CHPA2010US00483

PATIENT
  Age: 55 Year
  Sex: Female
  Weight: 68.027 kg

DRUGS (3)
  1. THERAFLU WARMING RELIEF COLD + CHEST CONG (NCH) [Suspect]
     Indication: PYREXIA
     Dosage: 3 TSP, Q4H
     Route: 048
     Dates: start: 20100101, end: 20100102
  2. THERAFLU WARMING RELIEF COLD + CHEST CONG (NCH) [Suspect]
     Indication: MALAISE
  3. ASPIRIN [Concomitant]
     Indication: HEADACHE
     Dosage: UNK, UNK
     Route: 048
     Dates: end: 20100101

REACTIONS (10)
  - DRUG INEFFECTIVE [None]
  - GAIT DISTURBANCE [None]
  - HEART RATE INCREASED [None]
  - HYPERSENSITIVITY [None]
  - LIVER FUNCTION TEST ABNORMAL [None]
  - MUSCLE SPASMS [None]
  - PAIN [None]
  - RASH ERYTHEMATOUS [None]
  - SWELLING [None]
  - URTICARIA [None]
